FAERS Safety Report 24063800 (Version 4)
Quarter: 2024Q3

REPORT INFORMATION
  Report Type: Spontaneous
  Country: JP (occurrence: JP)
  Receive Date: 20240709
  Receipt Date: 20240829
  Transmission Date: 20241016
  Serious: Yes (Other)
  Sender: ASTELLAS
  Company Number: JP-ASTELLAS-2024JP004227

PATIENT
  Age: 9 Decade
  Sex: Male

DRUGS (1)
  1. XTANDI [Suspect]
     Active Substance: ENZALUTAMIDE
     Indication: Prostate cancer
     Route: 048
     Dates: start: 20231120, end: 20240703

REACTIONS (3)
  - Interstitial lung disease [Unknown]
  - KL-6 increased [Not Recovered/Not Resolved]
  - Surfactant protein increased [Not Recovered/Not Resolved]

NARRATIVE: CASE EVENT DATE: 20240612
